FAERS Safety Report 6639104-1 (Version None)
Quarter: 2010Q1

REPORT INFORMATION
  Report Type: 
  Country: None (occurrence: None)
  Receive Date: 20100317
  Receipt Date: 20100315
  Transmission Date: 20100710
  Serious: Yes (Death, Life-Threatening, Hospitalization)
  Sender: FDA-Public Use
  Company Number: GB-WYE-G05671210

PATIENT
  Sex: Male

DRUGS (3)
  1. GEMTUZUMAB OZOGAMICIN [Suspect]
     Indication: ACUTE MYELOID LEUKAEMIA
     Dosage: (6MG , DAY 1, CYLICAL)
     Dates: start: 20100210, end: 20100210
  2. CYTARABINE [Suspect]
     Dosage: 400MG (DAYS 1 -10 )
     Dates: start: 20100210, end: 20100219
  3. DAUNORUBICIN HCL [Suspect]
     Dosage: 100MG (DAY 1, 3 AND 5)
     Route: 042
     Dates: start: 20100210, end: 20100214

REACTIONS (3)
  - CARDIAC ARREST [None]
  - DISEASE PROGRESSION [None]
  - SEPSIS [None]
